FAERS Safety Report 6402642-0 (Version None)
Quarter: 2009Q4

REPORT INFORMATION
  Report Type: 
  Country: None (occurrence: None)
  Receive Date: 20091009
  Receipt Date: 20090930
  Transmission Date: 20100525
  Serious: Yes (Other)
  Sender: FDA-Public Use
  Company Number: ADR34912009

PATIENT
  Age: 18 Year
  Sex: Female

DRUGS (2)
  1. CIPROFLOXACIN HYDROCHLORIDE [Suspect]
     Indication: PSEUDOMONAS INFECTION
     Dosage: 2 G, ORAL
     Route: 048
     Dates: start: 20031128, end: 20031201
  2. RIFAMPICIN [Concomitant]

REACTIONS (7)
  - ACTIVATED PARTIAL THROMBOPLASTIN TIME PROLONGED [None]
  - BLOOD CREATININE INCREASED [None]
  - BLOOD UREA INCREASED [None]
  - COAGULOPATHY [None]
  - INTERNATIONAL NORMALISED RATIO INCREASED [None]
  - TUBULOINTERSTITIAL NEPHRITIS [None]
  - VOMITING [None]
